FAERS Safety Report 5620035-0 (Version None)
Quarter: 2008Q1

REPORT INFORMATION
  Report Type: 
  Country: None (occurrence: None)
  Receive Date: 20080208
  Receipt Date: 20080206
  Transmission Date: 20080703
  Serious: Yes (Hospitalization, Other)
  Sender: FDA-Public Use
  Company Number: JP-BRACCO-BEI-004926

PATIENT
  Age: 68 Year
  Sex: Male

DRUGS (5)
  1. PROHANCE [Suspect]
     Indication: NUCLEAR MAGNETIC RESONANCE IMAGING
     Route: 042
     Dates: start: 20041126, end: 20041126
  2. ATROPIN [Concomitant]
     Route: 065
     Dates: start: 20041126, end: 20041126
  3. SIGMART [Concomitant]
     Route: 065
     Dates: start: 20041126, end: 20041126
  4. I.V. SOLUTIONS [Concomitant]
     Route: 042
     Dates: start: 20041126, end: 20041126
  5. OXYGEN [Concomitant]
     Route: 055
     Dates: start: 20041126, end: 20041126

REACTIONS (1)
  - ANAPHYLACTIC SHOCK [None]
